FAERS Safety Report 9800344 (Version 1)
Quarter: 2014Q1

REPORT INFORMATION
  Report Type: Spontaneous
  Country: BR (occurrence: BR)
  Receive Date: 20140106
  Receipt Date: 20140106
  Transmission Date: 20141002
  Serious: Yes (Other)
  Sender: FDA-Public Use
  Company Number: BR-JNJFOC-20131217199

PATIENT
  Age: 86 Year
  Sex: Male

DRUGS (2)
  1. IMOSEC [Suspect]
     Indication: SECRETION DISCHARGE
     Route: 065
     Dates: start: 201301
  2. IMOSEC [Suspect]
     Indication: DIARRHOEA
     Route: 065
     Dates: start: 201301

REACTIONS (5)
  - Intestinal polyp [Not Recovered/Not Resolved]
  - Flatulence [Not Recovered/Not Resolved]
  - Off label use [Unknown]
  - Treatment noncompliance [Recovered/Resolved]
  - Secretion discharge [Not Recovered/Not Resolved]
